FAERS Safety Report 10215723 (Version 1)
Quarter: 2014Q2

REPORT INFORMATION
  Report Type: Spontaneous
  Country: US (occurrence: None)
  Receive Date: 20140603
  Receipt Date: 20140603
  Transmission Date: 20141212
  Serious: Yes (Other)
  Sender: FDA-Public Use
  Company Number: None

PATIENT
  Age: 53 Year
  Sex: Female
  Weight: 69 kg

DRUGS (4)
  1. MORPHITROY [Suspect]
     Indication: COLORECTAL CANCER STAGE IV
     Route: 048
     Dates: start: 20140513, end: 20140520
  2. MORPHITROY [Suspect]
     Indication: METASTASIS
     Route: 048
     Dates: start: 20140513, end: 20140520
  3. MORPHITROY [Suspect]
     Route: 048
     Dates: start: 20140513, end: 20140520
  4. DICLOFENAC [Concomitant]

REACTIONS (3)
  - Vaginal discharge [None]
  - Urinary tract infection [None]
  - Vaginal odour [None]
